FAERS Safety Report 12055483 (Version 2)
Quarter: 2016Q1

REPORT INFORMATION
  Report Type: Spontaneous
  Country: JP (occurrence: JP)
  Receive Date: 20160209
  Receipt Date: 20160310
  Transmission Date: 20160526
  Serious: Yes (Other)
  Sender: FDA-Public Use
  Company Number: JP-JNJFOC-20160205600

PATIENT
  Age: 77 Year
  Sex: Male

DRUGS (3)
  1. TRAMCET [Suspect]
     Active Substance: ACETAMINOPHEN\TRAMADOL
     Indication: BACK PAIN
     Dosage: THREE TIMES A DAY
     Route: 048
     Dates: start: 20150625, end: 20151212
  2. LYRICA [Suspect]
     Active Substance: PREGABALIN
     Indication: BACK PAIN
     Dosage: ONCE A DAY
     Route: 048
     Dates: start: 201511
  3. LYRICA [Suspect]
     Active Substance: PREGABALIN
     Indication: BACK PAIN
     Dosage: ONCE A DAY
     Route: 048
     Dates: start: 2015

REACTIONS (1)
  - Sudden onset of sleep [Recovered/Resolved]

NARRATIVE: CASE EVENT DATE: 20151207
